FAERS Safety Report 19588552 (Version 2)
Quarter: 2021Q3

REPORT INFORMATION
  Report Type: Other
  Country: JP (occurrence: JP)
  Receive Date: 20210721
  Receipt Date: 20210729
  Transmission Date: 20211014
  Serious: Yes (Death, Other)
  Sender: FDA-Public Use
  Company Number: JP-ROCHE-2873508

PATIENT
  Age: 45 Year
  Sex: Female

DRUGS (2)
  1. AVASTIN [Suspect]
     Active Substance: BEVACIZUMAB
     Indication: INVASIVE BREAST CARCINOMA
     Dosage: UNK
     Route: 041
     Dates: start: 202009
  2. PACLITAXEL. [Concomitant]
     Active Substance: PACLITAXEL
     Indication: INVASIVE BREAST CARCINOMA
     Dosage: UNK
     Route: 041
     Dates: start: 202009

REACTIONS (3)
  - Ascites [Unknown]
  - Haematemesis [Unknown]
  - Hepatic failure [Fatal]

NARRATIVE: CASE EVENT DATE: 202011
